FAERS Safety Report 14404320 (Version 2)
Quarter: 2018Q1

REPORT INFORMATION
  Report Type: Report from Study
  Country: US (occurrence: US)
  Receive Date: 20180117
  Receipt Date: 20180323
  Transmission Date: 20180509
  Serious: Yes (Death, Other)
  Sender: FDA-Public Use
  Company Number: US-009507513-1801USA006067

PATIENT
  Sex: Male
  Weight: 113.38 kg

DRUGS (1)
  1. KEYTRUDA [Suspect]
     Active Substance: PEMBROLIZUMAB
     Indication: HEPATIC NEOPLASM
     Dosage: 1 INFUSION, Q3W
     Route: 042
     Dates: start: 20171101

REACTIONS (3)
  - Product use in unapproved indication [Unknown]
  - Death [Fatal]
  - Blood bilirubin increased [Unknown]
